FAERS Safety Report 8576353-X (Version None)
Quarter: 2012Q3

REPORT INFORMATION
  Report Type: 
  Country: None (occurrence: None)
  Receive Date: 20120807
  Receipt Date: 20120731
  Transmission Date: 20120928
  Serious: Yes (Other)
  Sender: FDA-Public Use
  Company Number: MY-ROCHE-1092797

PATIENT
  Sex: Female

DRUGS (1)
  1. ACTEMRA [Suspect]
     Indication: RHEUMATOID ARTHRITIS
     Dosage: LAST DOSE TAKEN PRIOR TO SAE WAS TAKEN ON 13/APR/2012
     Route: 042
     Dates: start: 20111011

REACTIONS (2)
  - HAEMATURIA [None]
  - COUGH [None]
